FAERS Safety Report 9470774 (Version 1)
Quarter: 2013Q3

REPORT INFORMATION
  Report Type: Spontaneous
  Country: FR (occurrence: FR)
  Receive Date: 20130822
  Receipt Date: 20130822
  Transmission Date: 20140515
  Serious: Yes (Hospitalization)
  Sender: FDA-Public Use
  Company Number: FR-ELI_LILLY_AND_COMPANY-FR201308004160

PATIENT
  Age: 85 Year
  Sex: Male

DRUGS (14)
  1. PROZAC [Suspect]
     Indication: DEPRESSION
     Dosage: 20 MG, QD
     Route: 048
     Dates: start: 20130311, end: 20130408
  2. MIANSERINE [Suspect]
     Indication: DEPRESSION
     Dosage: 30 MG, QD
     Route: 048
     Dates: start: 20130409, end: 20130429
  3. ROVAMYCINE /00074401/ [Suspect]
     Indication: LUNG INFECTION
     Dosage: 2 DF, TID
     Route: 048
     Dates: start: 20130330, end: 20130414
  4. CEFTRIAXONE [Suspect]
     Indication: LUNG INFECTION
     Dosage: 1 G, QD
     Route: 048
     Dates: start: 20130330, end: 20130414
  5. KARDEGIC [Concomitant]
  6. ZYLORIC [Concomitant]
  7. CARDENSIEL [Concomitant]
  8. BROMAZEPAM [Concomitant]
  9. PREVISCAN                          /00789001/ [Concomitant]
  10. FUROSEMIDE [Concomitant]
  11. SINGULAIR [Concomitant]
  12. RAMIPRIL [Concomitant]
  13. INEXIUM                            /01479302/ [Concomitant]
  14. TAHOR [Concomitant]

REACTIONS (6)
  - Lung infection [Unknown]
  - General physical health deterioration [Unknown]
  - Depression [Unknown]
  - Hypersensitivity vasculitis [Recovered/Resolved]
  - Purpura [Recovered/Resolved]
  - Somnolence [Unknown]
